FAERS Safety Report 13739331 (Version 1)
Quarter: 2017Q3

REPORT INFORMATION
  Report Type: Spontaneous
  Country: US (occurrence: US)
  Receive Date: 20170710
  Receipt Date: 20170710
  Transmission Date: 20171127
  Serious: Yes (Hospitalization)
  Sender: FDA-Public Use
  Company Number: None

PATIENT
  Age: 38 Year
  Sex: Male
  Weight: 63.56 kg

DRUGS (1)
  1. OCREVUS [Suspect]
     Active Substance: OCRELIZUMAB
     Indication: MULTIPLE SCLEROSIS RELAPSE
     Dosage: EVER 2 WKS X 2
     Route: 042
     Dates: start: 20170623, end: 20170623

REACTIONS (6)
  - Weight bearing difficulty [None]
  - Dysarthria [None]
  - Abdominal pain [None]
  - Urinary hesitation [None]
  - Asthenia [None]
  - Tremor [None]

NARRATIVE: CASE EVENT DATE: 20170703
